FAERS Safety Report 11273907 (Version 1)
Quarter: 2015Q3

REPORT INFORMATION
  Report Type: Spontaneous
  Country: CO (occurrence: CO)
  Receive Date: 20150715
  Receipt Date: 20150715
  Transmission Date: 20151125
  Serious: Yes (Death, Hospitalization, Other)
  Sender: FDA-Public Use
  Company Number: CO-PFIZER INC-2015234293

PATIENT
  Age: 57 Year
  Sex: Female

DRUGS (1)
  1. TOFACITINIB CITRATE [Suspect]
     Active Substance: TOFACITINIB CITRATE
     Indication: RHEUMATOID ARTHRITIS
     Dosage: UNK
     Route: 048
     Dates: start: 201410

REACTIONS (21)
  - C-reactive protein increased [Fatal]
  - Hyponatraemia [Fatal]
  - Acute phase reaction [Fatal]
  - Pyrexia [Unknown]
  - Blood alkaline phosphatase increased [Fatal]
  - Aspartate aminotransferase increased [Fatal]
  - Oropharyngeal candidiasis [Fatal]
  - Respiratory failure [Fatal]
  - Deep vein thrombosis [Unknown]
  - Alanine aminotransferase increased [Fatal]
  - Oesophageal candidiasis [Fatal]
  - Lymphadenopathy [Fatal]
  - General physical health deterioration [Unknown]
  - Diarrhoea [Unknown]
  - Dehydration [Fatal]
  - Urinary tract infection [Unknown]
  - Blood lactate dehydrogenase increased [Fatal]
  - Weight decreased [Unknown]
  - Drug intolerance [Unknown]
  - Vomiting [Unknown]
  - Metabolic acidosis [Fatal]

NARRATIVE: CASE EVENT DATE: 201503
